FAERS Safety Report 9676974 (Version 2)
Quarter: 2014Q1

REPORT INFORMATION
  Report Type: Spontaneous
  Country: GB (occurrence: GB)
  Receive Date: 20131108
  Receipt Date: 20140129
  Transmission Date: 20141002
  Serious: Yes (Disabling)
  Sender: FDA-Public Use
  Company Number: GB-009507513-1311GBR001939

PATIENT
  Age: 67 Year
  Sex: Female

DRUGS (3)
  1. ALENDRONATE SODIUM [Suspect]
     Indication: OSTEOPOROSIS
     Dosage: UNK
     Route: 048
     Dates: start: 20101001, end: 20130601
  2. CALCIUM LACTATE (+) CALCIUM PHOSPHATE, TRIBASIC (+) ERGOCALCIFEROL [Concomitant]
  3. VITAMIN D (UNSPECIFIED) [Concomitant]

REACTIONS (2)
  - Vulval ulceration [Recovered/Resolved with Sequelae]
  - Vulvitis [Recovered/Resolved with Sequelae]
